FAERS Safety Report 6695462-3 (Version None)
Quarter: 2010Q2

REPORT INFORMATION
  Report Type: 
  Country: None (occurrence: None)
  Receive Date: 20100422
  Receipt Date: 20100422
  Transmission Date: 20101027
  Serious: Yes (Hospitalization)
  Sender: FDA-Public Use
  Company Number: None

PATIENT
  Age: 31 Year
  Sex: Female
  Weight: 63.5 kg

DRUGS (10)
  1. CETUXIMAB, 400MG/M2, BRISTOL MYERS SQUIBB [Suspect]
     Indication: CERVIX CARCINOMA
     Dosage: 648MG, X1, IV
     Route: 042
     Dates: start: 20100408
  2. FENTANYL [Concomitant]
  3. DILAUDID [Concomitant]
  4. SEROQUEL [Concomitant]
  5. ZOFRAN [Concomitant]
  6. TYLENOL-500 [Concomitant]
  7. IBUPORFEN [Concomitant]
  8. COLACE [Concomitant]
  9. SENNA [Concomitant]
  10. MIRALAX [Concomitant]

REACTIONS (7)
  - ASTHENIA [None]
  - FATIGUE [None]
  - HYPERHIDROSIS [None]
  - NAUSEA [None]
  - NERVE COMPRESSION [None]
  - PAIN IN EXTREMITY [None]
  - URINARY TRACT INFECTION [None]
